FAERS Safety Report 9398262 (Version 3)
Quarter: 2014Q1

REPORT INFORMATION
  Report Type: Spontaneous
  Country: US (occurrence: US)
  Receive Date: 20130712
  Receipt Date: 20140124
  Transmission Date: 20141002
  Serious: Yes (Hospitalization)
  Sender: FDA-Public Use
  Company Number: US-GLAXOSMITHKLINE-A1032472A

PATIENT
  Age: 71 Year
  Sex: Female
  Weight: 85.5 kg

DRUGS (1)
  1. AVANDIA [Suspect]
     Indication: DIABETES MELLITUS
     Route: 048
     Dates: start: 20041021, end: 20080408

REACTIONS (2)
  - Haemorrhagic stroke [Unknown]
  - Coronary artery disease [Unknown]
